FAERS Safety Report 8832760 (Version 1)
Quarter: 2012Q4

REPORT INFORMATION
  Report Type: Spontaneous
  Country: US (occurrence: None)
  Receive Date: 20121009
  Receipt Date: 20121009
  Transmission Date: 20130627
  Serious: No
  Sender: FDA-Public Use
  Company Number: None

PATIENT
  Age: 40 Year
  Sex: Female
  Weight: 54.43 kg

DRUGS (1)
  1. LO/OVRAL [Suspect]
     Indication: BIRTH CONTROL
     Route: 048
     Dates: start: 20111123, end: 20120201

REACTIONS (2)
  - Product quality issue [None]
  - Poor quality drug administered [None]
